FAERS Safety Report 9968855 (Version 1)
Quarter: 2014Q1

REPORT INFORMATION
  Report Type: Report from Study
  Country: US (occurrence: US)
  Receive Date: 20140306
  Receipt Date: 20140306
  Transmission Date: 20141002
  Serious: No
  Sender: FDA-Public Use
  Company Number: US-ABBVIE-13P-163-1143488-00

PATIENT
  Sex: Female

DRUGS (4)
  1. HUMIRA [Suspect]
     Indication: RHEUMATOID ARTHRITIS
     Dates: start: 2011
  2. ESTROGEN [Concomitant]
     Indication: PRODUCT USED FOR UNKNOWN INDICATION
     Dosage: 6.25/1.25MG
  3. CLONAZEPAM [Concomitant]
     Indication: ANXIETY
  4. EFFEXOR [Concomitant]
     Indication: DEPRESSION
     Dosage: 75MG DAILY

REACTIONS (1)
  - Lymphocyte count increased [Not Recovered/Not Resolved]
